FAERS Safety Report 9243211 (Version 2)
Quarter: 2013Q2

REPORT INFORMATION
  Report Type: Spontaneous
  Country: US (occurrence: US)
  Receive Date: 20130419
  Receipt Date: 20130517
  Transmission Date: 20140414
  Serious: Yes (Hospitalization, Other)
  Sender: FDA-Public Use
  Company Number: US-BAYER-2013-047565

PATIENT
  Age: 7 Year
  Sex: Female
  Weight: 18 kg

DRUGS (1)
  1. RID SHAMPOO [Suspect]
     Dosage: 1 DOSE, ONCE
     Route: 048
     Dates: start: 201108

REACTIONS (7)
  - Convulsion [None]
  - Convulsion [None]
  - Convulsion [None]
  - Convulsion [None]
  - Convulsion [None]
  - Convulsion [None]
  - Convulsion [None]
